FAERS Safety Report 6993841-8 (Version None)
Quarter: 2010Q3

REPORT INFORMATION
  Report Type: 
  Country: None (occurrence: None)
  Receive Date: 20100917
  Receipt Date: 20100412
  Transmission Date: 20110219
  Serious: No
  Sender: FDA-Public Use
  Company Number: US-ASTRAZENECA-2010SE18246

PATIENT
  Age: 65 Year
  Sex: Male

DRUGS (2)
  1. SEROQUEL [Suspect]
     Dosage: 25 MG TO 300 MG
     Route: 048
     Dates: start: 20051005
  2. SERTRALINE HYDROCHLORIDE [Concomitant]
     Indication: AFFECTIVE DISORDER
     Dosage: 50 MG TO 100 MG
     Route: 048

REACTIONS (8)
  - CATARACT CORTICAL [None]
  - CORNEAL OPACITY [None]
  - ECZEMA [None]
  - HEPATITIS C [None]
  - HYPERTENSION [None]
  - POLYSUBSTANCE DEPENDENCE [None]
  - TOOTH DISORDER [None]
  - TYPE 2 DIABETES MELLITUS [None]
